FAERS Safety Report 24955689 (Version 1)
Quarter: 2025Q1

REPORT INFORMATION
  Report Type: Report from Study
  Country: US (occurrence: US)
  Receive Date: 20250211
  Receipt Date: 20250211
  Transmission Date: 20250408
  Serious: Yes (Hospitalization, Other)
  Sender: TAKEDA
  Company Number: US-TAKEDA-2025TUS014591

PATIENT
  Sex: Female
  Weight: 55.78 kg

DRUGS (46)
  1. HUMAN IMMUNOGLOBULIN G [Suspect]
     Active Substance: HUMAN IMMUNOGLOBULIN G
     Indication: Immunodeficiency common variable
     Dosage: 500 MILLIGRAM/KILOGRAM, Q4WEEKS
     Dates: start: 20241204
  2. ACETYLCYSTEINE [Concomitant]
     Active Substance: ACETYLCYSTEINE
  3. BACLOFEN [Concomitant]
     Active Substance: BACLOFEN
  4. PREDNISONE [Concomitant]
     Active Substance: PREDNISONE
  5. SLYND [Concomitant]
     Active Substance: DROSPIRENONE
  6. Omega [Concomitant]
  7. ALBUTEROL\IPRATROPIUM [Concomitant]
     Active Substance: ALBUTEROL\IPRATROPIUM
  8. FAMOTIDINE [Concomitant]
     Active Substance: FAMOTIDINE
  9. BAQSIMI [Concomitant]
     Active Substance: GLUCAGON
  10. METOPROLOL TARTRATE [Concomitant]
     Active Substance: METOPROLOL TARTRATE
  11. FORMOTEROL FUMARATE [Concomitant]
     Active Substance: FORMOTEROL FUMARATE
  12. TRAZODONE HCL [Concomitant]
     Active Substance: TRAZODONE HYDROCHLORIDE
  13. CALCIUM CARBONATE [Concomitant]
     Active Substance: CALCIUM CARBONATE
  14. VITAMIN D3 [Concomitant]
     Active Substance: CHOLECALCIFEROL
  15. LACTULOSE [Concomitant]
     Active Substance: LACTULOSE
  16. COQ [Concomitant]
  17. ALBUTEROL SULFATE [Concomitant]
     Active Substance: ALBUTEROL SULFATE
  18. GUAIFENESIN DM [Concomitant]
     Active Substance: DEXTROMETHORPHAN\DEXTROMETHORPHAN HYDROBROMIDE\GUAIFENESIN
  19. LINZESS [Concomitant]
     Active Substance: LINACLOTIDE
  20. LORAZEPAM [Concomitant]
     Active Substance: LORAZEPAM
  21. SALINE [Concomitant]
     Active Substance: SODIUM CHLORIDE
  22. LACTATED RINGERS SOLUTION [Concomitant]
     Active Substance: CALCIUM CHLORIDE\POTASSIUM CHLORIDE\SODIUM CHLORIDE\SODIUM LACTATE
  23. AZITHROMYCIN [Concomitant]
     Active Substance: AZITHROMYCIN
  24. FLONASE ALLERGY RELIEF [Concomitant]
     Active Substance: FLUTICASONE PROPIONATE
  25. GLYCERIN ADULT [Concomitant]
     Active Substance: GLYCERIN
  26. CALCITRIOL [Concomitant]
     Active Substance: CALCITRIOL
  27. METOPROLOL SUCCINATE [Concomitant]
     Active Substance: METOPROLOL SUCCINATE
  28. MAGNESIUM GLYCINATE [Concomitant]
     Active Substance: MAGNESIUM GLYCINATE
  29. BENZONATATE [Concomitant]
     Active Substance: BENZONATATE
  30. EFFEXOR [Concomitant]
     Active Substance: VENLAFAXINE HYDROCHLORIDE
  31. DUPIXENT [Concomitant]
     Active Substance: DUPILUMAB
  32. FLUDROCORTISONE ACETATE [Concomitant]
     Active Substance: FLUDROCORTISONE ACETATE
  33. MAGNESIUM CITRATE [Concomitant]
     Active Substance: MAGNESIUM CITRATE
  34. MONTELUKAST SODIUM [Concomitant]
     Active Substance: MONTELUKAST SODIUM
  35. BUSPIRONE HCL [Concomitant]
     Active Substance: BUSPIRONE HYDROCHLORIDE
  36. ONDANSETRON HYDROCHLORIDE [Concomitant]
     Active Substance: ONDANSETRON HYDROCHLORIDE
  37. POTASSIUM [Concomitant]
     Active Substance: POTASSIUM
  38. ZINC [Concomitant]
     Active Substance: ZINC
  39. ZENPEP [Concomitant]
     Active Substance: PANCRELIPASE AMYLASE\PANCRELIPASE LIPASE\PANCRELIPASE PROTEASE
  40. FEXOFENADINE HYDROCHLORIDE [Concomitant]
     Active Substance: FEXOFENADINE HYDROCHLORIDE
  41. HYDROCORTISONE [Concomitant]
     Active Substance: HYDROCORTISONE
  42. BROMFED DM [Concomitant]
     Active Substance: BROMPHENIRAMINE MALEATE\DEXTROMETHORPHAN HYDROBROMIDE\PSEUDOEPHEDRINE HYDROCHLORIDE
  43. METAMUCIL [Concomitant]
     Active Substance: PLANTAGO SEED
  44. BUDESONIDE [Concomitant]
     Active Substance: BUDESONIDE
  45. LEVOCARNITINE [Concomitant]
     Active Substance: LEVOCARNITINE
  46. PHOSPHORUS [Concomitant]
     Active Substance: PHOSPHORUS

REACTIONS (1)
  - Intestinal obstruction [Unknown]
